FAERS Safety Report 8929226 (Version 4)
Quarter: 2013Q3

REPORT INFORMATION
  Report Type: Spontaneous
  Country: GB (occurrence: None)
  Receive Date: 20121119
  Receipt Date: 20130702
  Transmission Date: 20140515
  Serious: Yes (Hospitalization, Other)
  Sender: FDA-Public Use
  Company Number: AUR-APL-2012-04805

PATIENT
  Age: 66 Year
  Sex: Male

DRUGS (9)
  1. RAMIPRIL (RAMIPRIL) [Suspect]
     Indication: ISCHAEMIC HEART DISEASE PROPHYLAXIS
     Route: 048
  2. ATORVASTATIN (ATORVASTATIN) [Concomitant]
     Indication: CORONARY ARTERY DISEASE
     Route: 048
     Dates: start: 20111230
  3. OMEPRAZOLE (OMEPRAZOLE) [Concomitant]
  4. CITALOPRAM (CITALOPRAM) [Suspect]
  5. BISOPROLOL (BISOPROLOL) [Concomitant]
  6. ASA (ACETYLSALICYLIC ACID) [Concomitant]
  7. EVEROLIMUS [Concomitant]
  8. PRASUGREL (PRASUGREL) [Concomitant]
  9. BLINDED THEAPY [Suspect]
     Indication: CORONARY ARTERY DISEASE
     Route: 048
     Dates: start: 20111230

REACTIONS (1)
  - Pneumonia [None]
